FAERS Safety Report 21093227 (Version 1)
Quarter: 2022Q3

REPORT INFORMATION
  Report Type: Spontaneous
  Country: CN (occurrence: None)
  Receive Date: 20220718
  Receipt Date: 20220718
  Transmission Date: 20221026
  Serious: Yes (Other)
  Sender: FDA-Public Use
  Company Number: CN-ROCHE-3134678

PATIENT
  Sex: Female
  Weight: 45 kg

DRUGS (7)
  1. HERCEPTIN [Suspect]
     Active Substance: TRASTUZUMAB
     Indication: Invasive breast carcinoma
     Route: 065
  2. HERCEPTIN [Suspect]
     Active Substance: TRASTUZUMAB
     Route: 065
  3. PERJETA [Suspect]
     Active Substance: PERTUZUMAB
     Indication: Invasive breast carcinoma
     Route: 065
  4. PERJETA [Suspect]
     Active Substance: PERTUZUMAB
     Route: 065
  5. DOCETAXEL [Concomitant]
     Active Substance: DOCETAXEL
     Indication: Invasive breast carcinoma
     Route: 065
  6. DOCETAXEL [Concomitant]
     Active Substance: DOCETAXEL
  7. CARBOPLATIN [Concomitant]
     Active Substance: CARBOPLATIN
     Indication: Invasive breast carcinoma
     Route: 065

REACTIONS (2)
  - Haematemesis [Unknown]
  - Myelosuppression [Unknown]
